FAERS Safety Report 8889224 (Version 4)
Quarter: 2013Q1

REPORT INFORMATION
  Report Type: Spontaneous
  Country: JP (occurrence: JP)
  Receive Date: 20121106
  Receipt Date: 20130102
  Transmission Date: 20140127
  Serious: Yes (Hospitalization)
  Sender: FDA-Public Use
  Company Number: JP-ROCHE-1150598

PATIENT
  Age: 72 Year
  Sex: Male
  Weight: 58 kg

DRUGS (7)
  1. HERCEPTIN [Suspect]
     Indication: GASTRIC CANCER
     Route: 041
     Dates: start: 20121003, end: 20121003
  2. HERCEPTIN [Suspect]
     Route: 041
     Dates: start: 20121008, end: 20121008
  3. XELODA [Suspect]
     Indication: GASTRIC CANCER
     Dosage: IT IS ADMINISTER/ONE WEEKLY HOLIDAY MEDICINE FOR TWO WEEKS.
     Route: 048
     Dates: start: 20121008, end: 20121022
  4. XELODA [Suspect]
     Route: 048
     Dates: start: 20121003, end: 20121016
  5. HYPEN [Suspect]
     Indication: PRODUCT USED FOR UNKNOWN INDICATION
     Route: 048
     Dates: start: 20121002, end: 20121022
  6. CISPLATIN [Suspect]
     Indication: GASTRIC CANCER
     Route: 041
     Dates: start: 20121003, end: 20121003
  7. CISPLATIN [Concomitant]

REACTIONS (2)
  - Mucosal inflammation [Recovered/Resolved]
  - Drug eruption [Recovered/Resolved]
